FAERS Safety Report 9006297 (Version 1)
Quarter: 2013Q1

REPORT INFORMATION
  Report Type: Spontaneous
  Country: US (occurrence: IL)
  Receive Date: 20130110
  Receipt Date: 20130110
  Transmission Date: 20140127
  Serious: Yes (Death)
  Sender: FDA-Public Use
  Company Number: US-AMGEN-ISRSP2013000173

PATIENT
  Age: 80 Year
  Sex: Female

DRUGS (1)
  1. EPOGEN [Suspect]
     Indication: BLOOD COUNT ABNORMAL
     Dosage: UNK UNK, 2 TIMES/WK

REACTIONS (2)
  - Mantle cell lymphoma [Fatal]
  - Chronic leukaemia [Fatal]
